FAERS Safety Report 5556857-4 (Version None)
Quarter: 2007Q4

REPORT INFORMATION
  Report Type: 
  Country: None (occurrence: None)
  Receive Date: 20071212
  Receipt Date: 20071212
  Transmission Date: 20080405
  Serious: Yes (Hospitalization)
  Sender: FDA-Public Use
  Company Number: None

PATIENT
  Age: 77 Year
  Sex: Male
  Weight: 98 kg

DRUGS (1)
  1. MARINOL [Suspect]
     Indication: DECREASED APPETITE
     Dosage: 10 MG BID PO
     Route: 048
     Dates: start: 20070615, end: 20070619

REACTIONS (1)
  - CONVULSION [None]
